FAERS Safety Report 5704257-6 (Version None)
Quarter: 2008Q2

REPORT INFORMATION
  Report Type: 
  Country: None (occurrence: None)
  Receive Date: 20080414
  Receipt Date: 20080212
  Transmission Date: 20081010
  Serious: No
  Sender: FDA-Public Use
  Company Number: US-BAYER-200814023NA

PATIENT
  Age: 58 Year
  Sex: Female

DRUGS (3)
  1. ULTRAVIST 300 [Suspect]
     Indication: COMPUTERISED TOMOGRAM ABDOMEN
     Dosage: AS USED: 1 ML
     Route: 042
     Dates: start: 20080208, end: 20080208
  2. GLUCOPHAGE [Concomitant]
  3. READI-CAT [Concomitant]
     Route: 048

REACTIONS (2)
  - BLISTER [None]
  - PRURITUS [None]
